FAERS Safety Report 9016013 (Version 3)
Quarter: 2014Q2

REPORT INFORMATION
  Report Type: Report from Study
  Country: JP (occurrence: JP)
  Receive Date: 20130116
  Receipt Date: 20140418
  Transmission Date: 20141212
  Serious: Yes (Life-Threatening, Hospitalization, Other)
  Sender: FDA-Public Use
  Company Number: JP-BRISTOL-MYERS SQUIBB COMPANY-17277823

PATIENT
  Age: 38 Year
  Sex: Female
  Weight: 43.9 kg

DRUGS (8)
  1. SPRYCEL [Suspect]
     Indication: ACUTE LYMPHOCYTIC LEUKAEMIA
     Dosage: 08SEP-12SEP12:100MG?25SEP-27SEP12,100MG?28SEP-21NOV12,140MG
     Route: 048
     Dates: start: 20120908, end: 20121121
  2. CYLOCIDE [Suspect]
     Indication: ACUTE LYMPHOCYTIC LEUKAEMIA
     Dosage: CYTARABINE VIA IT ROUTE AT 40MG/DAY ON 05-SEP-2012
     Dates: start: 20120906, end: 20120907
  3. METHOTREXATE SODIUM INJ [Suspect]
     Indication: ACUTE LYMPHOCYTIC LEUKAEMIA
     Dosage: INJECTION, ROUTE: INTRASPINAL?LAST DOSE ON 05SEP-05SEP12, 1460MG/D
     Route: 042
     Dates: start: 20120905
  4. CYCLOPHOSPHAMIDE [Concomitant]
     Indication: ACUTE LYMPHOCYTIC LEUKAEMIA
     Route: 041
  5. DAUNORUBICIN [Concomitant]
     Indication: ACUTE LYMPHOCYTIC LEUKAEMIA
     Route: 041
  6. VINCRISTINE SULFATE [Concomitant]
     Indication: ACUTE LYMPHOCYTIC LEUKAEMIA
     Route: 042
  7. PREDNISOLONE [Concomitant]
     Dosage: TABS
     Route: 048
  8. CONCENTRATED RED BLOOD CELLS [Concomitant]
     Dates: start: 20120807, end: 20130218

REACTIONS (5)
  - Neutrophil count decreased [Recovered/Resolved]
  - Organising pneumonia [Recovered/Resolved with Sequelae]
  - Blood beta-D-glucan increased [Unknown]
  - Bone marrow transplant [Unknown]
  - Transaminases increased [Recovering/Resolving]
